FAERS Safety Report 18211225 (Version 2)
Quarter: 2025Q2

REPORT INFORMATION
  Report Type: Report from Study
  Country: FR (occurrence: FR)
  Receive Date: 20200831
  Receipt Date: 20250629
  Transmission Date: 20250717
  Serious: Yes (Other)
  Sender: AUROBINDO
  Company Number: FR-GLAXOSMITHKLINE-FR2020GSK157651

PATIENT
  Age: 44 Year
  Sex: Female

DRUGS (1)
  1. LAMIVUDINE [Suspect]
     Active Substance: LAMIVUDINE
     Indication: Chronic hepatitis B
     Route: 065

REACTIONS (5)
  - Pathogen resistance [Unknown]
  - Hepatitis B reactivation [Unknown]
  - Treatment failure [Unknown]
  - Viral mutation identified [Unknown]
  - Drug resistance [Unknown]
